FAERS Safety Report 5683049-0 (Version None)
Quarter: 2008Q1

REPORT INFORMATION
  Report Type: 
  Country: None (occurrence: None)
  Receive Date: 20080327
  Receipt Date: 20080321
  Transmission Date: 20080703
  Serious: Yes (Hospitalization)
  Sender: FDA-Public Use
  Company Number: PHEH2008US02994

PATIENT
  Sex: Male

DRUGS (1)
  1. LAMISIL [Suspect]
     Dates: start: 20070618

REACTIONS (4)
  - ACTIVITIES OF DAILY LIVING IMPAIRED [None]
  - CONFUSIONAL STATE [None]
  - RASH [None]
  - RENAL DISORDER [None]
